FAERS Safety Report 25911410 (Version 1)
Quarter: 2025Q4

REPORT INFORMATION
  Report Type: Spontaneous
  Country: CA (occurrence: CA)
  Receive Date: 20251013
  Receipt Date: 20251013
  Transmission Date: 20260119
  Serious: Yes (Other)
  Sender: CELLTRION
  Company Number: CA-CELLTRION INC.-2025CA036342

PATIENT

DRUGS (1)
  1. INFLIXIMAB [Suspect]
     Active Substance: INFLIXIMAB
     Indication: Ankylosing spondylitis
     Dosage: 500 MILLIGRAM
     Route: 042

REACTIONS (5)
  - Arthropod bite [Recovering/Resolving]
  - Head injury [Recovering/Resolving]
  - Wound infection [Recovering/Resolving]
  - Infected bite [Recovering/Resolving]
  - Overdose [Unknown]
